FAERS Safety Report 5119361-3 (Version None)
Quarter: 2006Q4

REPORT INFORMATION
  Report Type: 
  Country: None (occurrence: None)
  Receive Date: 20061003
  Receipt Date: 20060707
  Transmission Date: 20070319
  Serious: Yes (Other)
  Sender: FDA-Public Use
  Company Number: US-AVENTIS-200615700US

PATIENT
  Sex: Male

DRUGS (5)
  1. LANTUS [Suspect]
     Indication: DIABETES MELLITUS INSULIN-DEPENDENT
     Dates: start: 20010101
  2. LANTUS [Suspect]
  3. REGULAR INSULIN [Concomitant]
     Dosage: DOSE: SLIDING SCALE
  4. DIOVAN [Concomitant]
     Dosage: DOSE: UNK
  5. ZOCOR [Concomitant]
     Dosage: DOSE: UNK

REACTIONS (3)
  - BLINDNESS [None]
  - BLOOD GLUCOSE INCREASED [None]
  - PHARMACEUTICAL PRODUCT COMPLAINT [None]
